FAERS Safety Report 8184716-X (Version None)
Quarter: 2012Q1

REPORT INFORMATION
  Report Type: 
  Country: None (occurrence: None)
  Receive Date: 20120305
  Receipt Date: 20120305
  Transmission Date: 20120608
  Serious: Yes (Death)
  Sender: FDA-Public Use
  Company Number: None

PATIENT
  Age: 47 Year
  Sex: Male
  Weight: 44.452 kg

DRUGS (2)
  1. VIDEX [Suspect]
     Indication: HIV INFECTION
     Dosage: 300 MG
     Route: 048
     Dates: start: 19990812, end: 20001213
  2. VIDEX EC [Concomitant]
     Indication: HIV INFECTION
     Dosage: 250 MG
     Route: 048
     Dates: start: 20001213, end: 20031023

REACTIONS (5)
  - GASTROINTESTINAL HAEMORRHAGE [None]
  - PORTAL HYPERTENSION [None]
  - THROMBOSIS [None]
  - VARICES OESOPHAGEAL [None]
  - NODULAR REGENERATIVE HYPERPLASIA [None]
